FAERS Safety Report 8073187-X (Version None)
Quarter: 2012Q1

REPORT INFORMATION
  Report Type: 
  Country: None (occurrence: None)
  Receive Date: 20120126
  Receipt Date: 20120113
  Transmission Date: 20120608
  Serious: Yes (Hospitalization)
  Sender: FDA-Public Use
  Company Number: ES-ELI_LILLY_AND_COMPANY-ES201201004195

PATIENT
  Sex: Female
  Weight: 65 kg

DRUGS (5)
  1. VOLTAREN [Concomitant]
     Indication: ANALGESIC THERAPY
     Dosage: 1 DF, BID
     Route: 048
  2. SIMVASTATIN [Concomitant]
     Indication: BLOOD CHOLESTEROL
     Dosage: 1 DF, QD
  3. LORAZEPAM [Concomitant]
     Indication: POOR QUALITY SLEEP
     Dosage: 1 DF, QD
  4. FORTEO [Suspect]
     Indication: OSTEOPOROSIS
     Dosage: 20 UG, QD
     Route: 058
     Dates: start: 20110627
  5. EPROSARTAN MESYLATE [Concomitant]
     Indication: HYPERTENSION
     Dosage: 1 DF, QD
     Route: 048

REACTIONS (2)
  - SPINAL FRACTURE [None]
  - FALL [None]
